FAERS Safety Report 16514694 (Version 1)
Quarter: 2019Q3

REPORT INFORMATION
  Report Type: Spontaneous
  Country: CA (occurrence: CA)
  Receive Date: 20190702
  Receipt Date: 20190702
  Transmission Date: 20191004
  Serious: Yes (Hospitalization, Other)
  Sender: FDA-Public Use
  Company Number: CA-TEVA-2019-CA-1070301

PATIENT
  Age: 90 Year
  Sex: Male

DRUGS (1)
  1. GABAPENTIN. [Suspect]
     Active Substance: GABAPENTIN
     Indication: NEURALGIA
     Dosage: 200 MILLIGRAM DAILY;
     Route: 048

REACTIONS (3)
  - Confusional state [Unknown]
  - Asthenia [Unknown]
  - Somnolence [Unknown]
